FAERS Safety Report 17607909 (Version 3)
Quarter: 2020Q2

REPORT INFORMATION
  Report Type: Report from Study
  Country: None (occurrence: CO)
  Receive Date: 20200401
  Receipt Date: 20200604
  Transmission Date: 20200713
  Serious: Yes (Other)
  Sender: FDA-Public Use
  Company Number: CO-ABBVIE-20K-036-3345939-00

PATIENT
  Age: 40 Year
  Sex: Female
  Weight: 51 kg

DRUGS (2)
  1. HUMIRA [Suspect]
     Active Substance: ADALIMUMAB
     Indication: CROHN^S DISEASE
     Route: 058
     Dates: start: 20180829, end: 20191226
  2. IRON [Concomitant]
     Active Substance: IRON
     Indication: ANAEMIA
     Route: 051

REACTIONS (7)
  - Hypersensitivity [Recovered/Resolved]
  - Crohn^s disease [Not Recovered/Not Resolved]
  - Gastrointestinal infection [Unknown]
  - Stool analysis abnormal [Unknown]
  - Respiratory distress [Recovered/Resolved]
  - Haematochezia [Not Recovered/Not Resolved]
  - Vomiting [Not Recovered/Not Resolved]

NARRATIVE: CASE EVENT DATE: 201911
